FAERS Safety Report 12105155 (Version 1)
Quarter: 2016Q1

REPORT INFORMATION
  Report Type: Spontaneous
  Country: US (occurrence: US)
  Receive Date: 20160223
  Receipt Date: 20160223
  Transmission Date: 20160526
  Serious: No
  Sender: FDA-Public Use
  Company Number: US-BAYER-2016-035125

PATIENT
  Age: 77 Year
  Sex: Female
  Weight: 76.19 kg

DRUGS (2)
  1. ALEVE [Suspect]
     Active Substance: NAPROXEN SODIUM
     Indication: ARTHRALGIA
     Dosage: UNK, EVERY 12 HOURS
     Route: 048
     Dates: start: 2015, end: 2016
  2. PHILLIPS^ FIBER GOOD GUMMIES [Suspect]
     Active Substance: INULIN
     Indication: DYSPEPSIA
     Dosage: 2 DF, QD
     Route: 048
     Dates: start: 20160221, end: 20160221

REACTIONS (6)
  - Abdominal pain upper [None]
  - Abdominal discomfort [None]
  - Product use issue [None]
  - Abdominal discomfort [None]
  - Insomnia [None]
  - Abdominal pain upper [None]

NARRATIVE: CASE EVENT DATE: 20160221
